FAERS Safety Report 9559201 (Version 5)
Quarter: 2014Q2

REPORT INFORMATION
  Report Type: Report from Study
  Country: US (occurrence: US)
  Receive Date: 20130927
  Receipt Date: 20140630
  Transmission Date: 20141212
  Serious: Yes (Congenital Anomaly, Other)
  Sender: FDA-Public Use
  Company Number: US-009507513-1309USA012341

PATIENT
  Age: 0 Day
  Sex: Male
  Weight: 2.1 kg

DRUGS (6)
  1. REBETOL [Suspect]
     Indication: HEPATITIS C
     Dosage: UNK
     Route: 064
     Dates: start: 20111020, end: 20111115
  2. NORVIR [Concomitant]
     Indication: HIV INFECTION
     Dosage: 100 MG, UNK
     Route: 064
  3. PROVENTIL HFA [Concomitant]
     Indication: ASTHMA
     Dosage: 90 MICROGRAM, UNK
     Route: 064
  4. REYATAZ [Concomitant]
     Indication: HIV INFECTION
     Dosage: 300 MG, UNK
     Route: 064
  5. TRUVADA [Concomitant]
     Indication: HIV INFECTION
     Dosage: DOSE: 200-300 MG
     Route: 064
  6. IRON (UNSPECIFIED) (+) MINERALS (UNSPECIFIED) (+) VITAMINS (UNSPECIFIE [Concomitant]

REACTIONS (2)
  - Deafness congenital [Unknown]
  - Foetal exposure during pregnancy [Recovered/Resolved]
